FAERS Safety Report 17877251 (Version 1)
Quarter: 2020Q2

REPORT INFORMATION
  Report Type: Spontaneous
  Country: CA (occurrence: CA)
  Receive Date: 20200609
  Receipt Date: 20200609
  Transmission Date: 20200714
  Serious: Yes (Life-Threatening, Hospitalization)
  Sender: FDA-Public Use
  Company Number: CA-PFIZER INC-2020219841

PATIENT
  Age: 12 Year
  Sex: Male
  Weight: 51 kg

DRUGS (6)
  1. METHOTREXATE SODIUM. [Suspect]
     Active Substance: METHOTREXATE SODIUM
     Indication: OSTEOSARCOMA
     Dosage: 17.0 G ONCE
     Route: 042
  2. CISPLATIN. [Suspect]
     Active Substance: CISPLATIN
     Indication: OSTEOSARCOMA
     Dosage: UNK, 1X/DAY
     Route: 042
  3. FILGRASTIM [Concomitant]
     Active Substance: FILGRASTIM
  4. LEUCOVORIN [FOLINIC ACID] [Concomitant]
     Active Substance: LEUCOVORIN
  5. ADRIAMYCIN [Suspect]
     Active Substance: DOXORUBICIN HYDROCHLORIDE
     Indication: OSTEOSARCOMA
     Dosage: 55 MG, 1X/DAY
     Route: 042
  6. ZINECARD [DEXRAZOXANE] [Concomitant]

REACTIONS (3)
  - Headache [Recovering/Resolving]
  - Pyrexia [Recovering/Resolving]
  - Neutropenia [Recovering/Resolving]
